FAERS Safety Report 13395471 (Version 1)
Quarter: 2017Q2

REPORT INFORMATION
  Report Type: Spontaneous
  Country: US (occurrence: US)
  Receive Date: 20170401
  Receipt Date: 20170401
  Transmission Date: 20170830
  Serious: Yes (Disabling)
  Sender: FDA-Public Use
  Company Number: None

PATIENT
  Age: 68 Year
  Sex: Female
  Weight: 76.95 kg

DRUGS (11)
  1. BREO ELLIPTA [Suspect]
     Active Substance: FLUTICASONE FUROATE\VILANTEROL TRIFENATATE
     Indication: ASTHMA
     Dosage: ?          OTHER STRENGTH:MCG;QUANTITY:1 PUFF(S);?
     Route: 055
     Dates: start: 20170228, end: 20170401
  2. OLOPATADINE. [Concomitant]
     Active Substance: OLOPATADINE
  3. LEVOCETIRIZINE [Concomitant]
     Active Substance: LEVOCETIRIZINE
  4. S-ADENOSYLMETHIONINE SULFATE P-TOLUENESULFONATE [Concomitant]
     Active Substance: ADEMETIONINE SULFATE TOSILATE
  5. SUPER B VITAMINS [Concomitant]
  6. BIOTIN [Concomitant]
     Active Substance: BIOTIN
  7. ESTRADIOL. [Concomitant]
     Active Substance: ESTRADIOL
  8. FENOFIBRATE. [Suspect]
     Active Substance: FENOFIBRATE
  9. LUMIGAN [Concomitant]
     Active Substance: BIMATOPROST
  10. MULTI VITAMIN [Concomitant]
     Active Substance: VITAMINS
  11. MAGNESIUM-CALCIUM-D [Concomitant]

REACTIONS (1)
  - Oesophageal candidiasis [None]

NARRATIVE: CASE EVENT DATE: 20170315
